FAERS Safety Report 14283638 (Version 2)
Quarter: 2017Q4

REPORT INFORMATION
  Report Type: Report from Study
  Country: None (occurrence: US)
  Receive Date: 20171214
  Receipt Date: 20171228
  Transmission Date: 20180321
  Serious: Yes (Other)
  Sender: FDA-Public Use
  Company Number: US-ABBVIE-17K-163-2189283-00

PATIENT
  Age: 27 Year
  Sex: Male
  Weight: 127.12 kg

DRUGS (4)
  1. HUMIRA [Suspect]
     Active Substance: ADALIMUMAB
     Indication: HIDRADENITIS
     Route: 058
     Dates: start: 201708, end: 201708
  2. ADVIL [Concomitant]
     Active Substance: IBUPROFEN
     Indication: DISCOMFORT
  3. HUMIRA [Suspect]
     Active Substance: ADALIMUMAB
     Dosage: FOR TWO DOSES
     Route: 058
     Dates: start: 201709, end: 201710
  4. HUMIRA [Suspect]
     Active Substance: ADALIMUMAB
     Route: 058
     Dates: start: 201709, end: 201709

REACTIONS (5)
  - Dehydration [Unknown]
  - Urinary retention [Recovered/Resolved]
  - Nephritis [Recovered/Resolved]
  - Gastric cyst [Recovering/Resolving]
  - Back pain [Recovered/Resolved]

NARRATIVE: CASE EVENT DATE: 2017
